FAERS Safety Report 15263326 (Version 1)
Quarter: 2018Q3

REPORT INFORMATION
  Report Type: Spontaneous
  Country: US (occurrence: US)
  Receive Date: 20180810
  Receipt Date: 20180810
  Transmission Date: 20181010
  Serious: Yes (Hospitalization, Other)
  Sender: FDA-Public Use
  Company Number: US-ZYDUS-021068

PATIENT
  Age: 20 Year
  Sex: Female

DRUGS (11)
  1. BASILIXIMAB [Concomitant]
     Active Substance: BASILIXIMAB
     Indication: IMMUNOSUPPRESSANT DRUG THERAPY
     Dosage: 20 MG IV ON POST?OPERATIVE DAY (POD) 1 AND 5
     Route: 042
  2. METHYLPREDNISOLONE. [Concomitant]
     Active Substance: METHYLPREDNISOLONE
     Indication: IMMUNOSUPPRESSANT DRUG THERAPY
     Route: 042
  3. PREDNISONE. [Concomitant]
     Active Substance: PREDNISONE
     Indication: IMMUNOSUPPRESSANT DRUG THERAPY
     Route: 048
  4. MYCOPHENOLIC ACID. [Concomitant]
     Active Substance: MYCOPHENOLIC ACID
     Indication: IMMUNOSUPPRESSANT DRUG THERAPY
     Route: 048
  5. ISAVUCONAZOLE [Interacting]
     Active Substance: ISAVUCONAZOLE
     Indication: CYSTIC FIBROSIS
     Dosage: LOADING DOSE OF ISAVUCONAZONIUM SULFATE 372 MG (EQUIVALENT TO 200 MG OF ISAVUCONAZOLE) EVERY 8 HOURS
     Route: 042
  6. LINEZOLID. [Concomitant]
     Active Substance: LINEZOLID
     Indication: CYSTIC FIBROSIS
     Route: 042
  7. VORICONAZOLE. [Suspect]
     Active Substance: VORICONAZOLE
     Indication: CYSTIC FIBROSIS
     Route: 042
  8. AMIKACIN. [Concomitant]
     Active Substance: AMIKACIN
     Indication: CYSTIC FIBROSIS
     Dosage: DOSED BASED ON TDM WITH A GOAL PEAK OF 60 MCG/ML
     Route: 065
  9. TACROLIMUS. [Concomitant]
     Active Substance: TACROLIMUS
     Indication: IMMUNOSUPPRESSANT DRUG THERAPY
     Dosage: DOSED BASED ON TDM WITH GOAL 12?HOUR TROUGH OF 8?12 NG/ML
     Route: 065
  10. ISAVUCONAZOLE [Interacting]
     Active Substance: ISAVUCONAZOLE
     Indication: CYSTIC FIBROSIS
     Route: 042
  11. CEFTAZIDIME?AVIBACTAM [Concomitant]
     Active Substance: AVIBACTAM SODIUM\CEFTAZIDIME
     Indication: CYSTIC FIBROSIS
     Route: 042

REACTIONS (5)
  - Nausea [Unknown]
  - Diarrhoea [Unknown]
  - Drug interaction [Unknown]
  - Drug level increased [Unknown]
  - Abdominal discomfort [Unknown]
